FAERS Safety Report 8501048-8 (Version None)
Quarter: 2012Q2

REPORT INFORMATION
  Report Type: 
  Country: None (occurrence: None)
  Receive Date: 20120405
  Receipt Date: 20110309
  Transmission Date: 20120825
  Serious: Yes (Life-Threatening)
  Sender: FDA-Public Use
  Company Number: PHHY2011US15060

PATIENT
  Age: 55 Year
  Sex: Female
  Weight: 99.3 kg

DRUGS (6)
  1. VIVELLE-DOT [Concomitant]
  2. PROMETRIUM [Concomitant]
  3. RECLAST [Suspect]
     Indication: OSTEOPOROSIS
     Dosage: UNK, INTRAVENOUS
     Route: 042
     Dates: start: 20101213
  4. LISINOPRIL [Concomitant]
  5. CRESTOR [Concomitant]
  6. NEXIUM [Concomitant]

REACTIONS (3)
  - DEHYDRATION [None]
  - BLOOD CREATININE INCREASED [None]
  - RENAL FAILURE [None]
